FAERS Safety Report 6383124-1 (Version None)
Quarter: 2009Q3

REPORT INFORMATION
  Report Type: 
  Country: None (occurrence: None)
  Receive Date: 20090928
  Receipt Date: 20090916
  Transmission Date: 20100115
  Serious: No
  Sender: FDA-Public Use
  Company Number: 2009AP003663

PATIENT
  Age: 54 Year
  Sex: Female

DRUGS (2)
  1. TERBINAFINE HCL [Suspect]
     Indication: FUNGAL INFECTION
     Dosage: 250 MG; QD; PO
     Route: 048
     Dates: start: 20090902
  2. FLUTICASONE PROPIONATE [Concomitant]

REACTIONS (1)
  - MIGRAINE WITH AURA [None]
